FAERS Safety Report 8401963-X (Version None)
Quarter: 2012Q2

REPORT INFORMATION
  Report Type: 
  Country: None (occurrence: None)
  Receive Date: 20120601
  Receipt Date: 20120529
  Transmission Date: 20120825
  Serious: Yes (Hospitalization, Other)
  Sender: FDA-Public Use
  Company Number: JP-PFIZER INC-2012092029

PATIENT
  Age: 82 Year
  Sex: Male
  Weight: 58.5 kg

DRUGS (1)
  1. SUTENT [Suspect]
     Indication: RENAL CELL CARCINOMA
     Dosage: 25 MG, 1X/DAY
     Route: 048
     Dates: start: 20110114, end: 20120401

REACTIONS (2)
  - RENAL DISORDER [None]
  - GASTRIC HAEMORRHAGE [None]
